FAERS Safety Report 4707585-6 (Version None)
Quarter: 2005Q3

REPORT INFORMATION
  Report Type: 
  Country: None (occurrence: None)
  Receive Date: 20050706
  Receipt Date: 20050627
  Transmission Date: 20060218
  Serious: Yes (Hospitalization)
  Sender: FDA-Public Use
  Company Number: PHRM2005FR01970

PATIENT
  Age: 52 Year
  Sex: Female

DRUGS (5)
  1. SANDIMMUNE [Suspect]
     Indication: BONE MARROW TRANSPLANT
     Dosage: 100 MG PER DAY
     Route: 042
     Dates: start: 20050317
  2. SANDIMMUNE [Suspect]
     Dosage: 75 MG, BID
     Route: 042
     Dates: end: 20050509
  3. SANDIMMUNE [Suspect]
     Dosage: 100 MG, BID
     Route: 042
     Dates: start: 20050510, end: 20050518
  4. SANDIMMUNE [Suspect]
     Dosage: 125 MG, BID
     Route: 042
     Dates: start: 20050519, end: 20050523
  5. SANDIMMUNE [Suspect]
     Dosage: 50 MG, BID
     Route: 042
     Dates: start: 20050524

REACTIONS (16)
  - BLOOD BILIRUBIN INCREASED [None]
  - BLOOD CREATININE INCREASED [None]
  - BLOOD LACTATE DEHYDROGENASE INCREASED [None]
  - DIALYSIS [None]
  - DYSPNOEA [None]
  - EJECTION FRACTION DECREASED [None]
  - HAEMOLYTIC URAEMIC SYNDROME [None]
  - HAPTOGLOBIN DECREASED [None]
  - HISTIOCYTOSIS HAEMATOPHAGIC [None]
  - HUMAN HERPES VIRUS 6 SEROLOGY POSITIVE [None]
  - MITRAL VALVE INCOMPETENCE [None]
  - OXYGEN SATURATION DECREASED [None]
  - PYREXIA [None]
  - RENAL TUBULAR NECROSIS [None]
  - TACHYCARDIA [None]
  - THROMBOCYTOPENIA [None]
